FAERS Safety Report 11630748 (Version 3)
Quarter: 2015Q4

REPORT INFORMATION
  Report Type: Spontaneous
  Country: US (occurrence: US)
  Receive Date: 20151014
  Receipt Date: 20151019
  Transmission Date: 20160304
  Serious: No
  Sender: FDA-Public Use
  Company Number: US-BAYER-2015-441808

PATIENT
  Age: 61 Year
  Sex: Female
  Weight: 83.9 kg

DRUGS (3)
  1. CLARITIN-D 24 HOUR [Suspect]
     Active Substance: LORATADINE\PSEUDOEPHEDRINE SULFATE
     Indication: SEASONAL ALLERGY
     Dosage: 1 DF, QD
     Route: 048
  2. CLARITIN-D 12 HOUR [Suspect]
     Active Substance: LORATADINE\PSEUDOEPHEDRINE SULFATE
     Indication: SEASONAL ALLERGY
     Dosage: 2 DF, QD
     Route: 048
     Dates: start: 2002, end: 2014
  3. ADVIL [Concomitant]
     Active Substance: IBUPROFEN

REACTIONS (5)
  - Heart rate increased [Recovered/Resolved]
  - Dry mouth [Unknown]
  - Drug ineffective [Unknown]
  - Product use issue [Unknown]
  - Therapeutic response unexpected [None]

NARRATIVE: CASE EVENT DATE: 2014
